FAERS Safety Report 16164733 (Version 1)
Quarter: 2019Q2

REPORT INFORMATION
  Report Type: Spontaneous
  Country: US (occurrence: US)
  Receive Date: 20190405
  Receipt Date: 20190405
  Transmission Date: 20190711
  Serious: Yes (Other)
  Sender: FDA-Public Use
  Company Number: US-VERICEL CORPORATION-VCEL-2019-000027

PATIENT
  Age: 21 Year
  Sex: Male

DRUGS (1)
  1. MACI [Suspect]
     Active Substance: AUTOLOGOUS CULTURED CHONDROCYTES\SUS SCROFA COLLAGEN
     Indication: CARTILAGE INJURY

REACTIONS (2)
  - Graft delamination [Not Recovered/Not Resolved]
  - Graft complication [Not Recovered/Not Resolved]

NARRATIVE: CASE EVENT DATE: 20171215
